FAERS Safety Report 9695038 (Version 1)
Quarter: 2013Q4

REPORT INFORMATION
  Report Type: Spontaneous
  Country: US (occurrence: None)
  Receive Date: 20131119
  Receipt Date: 20131119
  Transmission Date: 20140711
  Serious: Yes (Other)
  Sender: FDA-Public Use
  Company Number: None

PATIENT
  Age: 34 Year
  Sex: Female
  Weight: 76.2 kg

DRUGS (1)
  1. MIFEPRISTONE [Suspect]
     Indication: ABORTION INDUCED
     Dosage: 3 PILLS ORAL
     Route: 048
     Dates: start: 20131114, end: 20131114

REACTIONS (2)
  - Haemorrhage [None]
  - Haemoglobin decreased [None]
